FAERS Safety Report 11149056 (Version 2)
Quarter: 2015Q2

REPORT INFORMATION
  Report Type: Report from Study
  Country: JP (occurrence: JP)
  Receive Date: 20150529
  Receipt Date: 20150603
  Transmission Date: 20150821
  Serious: Yes (Hospitalization)
  Sender: FDA-Public Use
  Company Number: JP-EISAI MEDICAL RESEARCH-EC-2015-007074

PATIENT
  Age: 86 Year
  Sex: Male
  Weight: 46 kg

DRUGS (14)
  1. BONOTEO [Concomitant]
     Active Substance: MINODRONIC ACID
  2. MEPTIN [Concomitant]
     Active Substance: PROCATEROL HYDROCHLORIDE
  3. MOHRUS TAPE [Concomitant]
     Active Substance: KETOPROFEN
  4. HOKUNALIN-TAPE [Concomitant]
  5. AMLODIPINE [Concomitant]
     Active Substance: AMLODIPINE BESYLATE
  6. MEPTIN AIR [Concomitant]
     Active Substance: PROCATEROL HYDROCHLORIDE
  7. KARY UNI [Concomitant]
     Active Substance: PIRENOXINE
  8. THEOPHYLLINE [Concomitant]
     Active Substance: THEOPHYLLINE ANHYDROUS
  9. LOXONIN [Concomitant]
     Active Substance: LOXOPROFEN SODIUM
  10. RABEPRAZOLE [Suspect]
     Active Substance: RABEPRAZOLE
     Dosage: DOUBLE BLIND (MAINTENANCE PERIOD)
     Route: 048
     Dates: start: 20140519, end: 20150517
  11. ALFACALCIDOL [Concomitant]
     Active Substance: ALFACALCIDOL
  12. CLEANAL [Concomitant]
     Active Substance: FUDOSTEINE
  13. RABEPRAZOLE [Suspect]
     Active Substance: RABEPRAZOLE
     Indication: GASTROOESOPHAGEAL REFLUX DISEASE
     Route: 048
     Dates: start: 20140324, end: 20140518
  14. ULTIBRO [Concomitant]
     Active Substance: GLYCOPYRRONIUM\INDACATEROL

REACTIONS (1)
  - Pulmonary tuberculosis [Not Recovered/Not Resolved]

NARRATIVE: CASE EVENT DATE: 20150518
